FAERS Safety Report 8561821 (Version 3)
Quarter: 2012Q4

REPORT INFORMATION
  Report Type: Spontaneous
  Country: IT (occurrence: None)
  Receive Date: 20120509
  Receipt Date: 20120913
  Transmission Date: 20130627
  Serious: Yes (Life-Threatening, Other)
  Sender: FDA-Public Use
  Company Number: MC201200281

PATIENT
  Age: 73 Year
  Sex: Male
  Weight: 95 kg

DRUGS (4)
  1. ANGIOMAX [Suspect]
     Indication: CORONARY ANGIOPLASTY
     Dosage: (14.3 ml)
     Route: 042
     Dates: start: 20120413, end: 20120413
  2. ANGIOMAX [Suspect]
     Indication: CORONARY ANGIOPLASTY
     Dosage: infusion
     Route: 042
     Dates: start: 20120413, end: 20120413
  3. ASPIRIN [Suspect]
     Indication: CORONARY ANGIOPLASTY
     Dates: end: 20120413
  4. PLAVIX (CLOPIDOGREL SULFATE) [Suspect]
     Indication: CORONARY ANGIOPLASTY
     Dosage: during procedure
     Dates: start: 20120413, end: 20120413

REACTIONS (6)
  - Hemiparesis [None]
  - Subdural haematoma [None]
  - Nervous system disorder [None]
  - Haemorrhage [None]
  - Hemiparesis [None]
  - Platelet count decreased [None]
